FAERS Safety Report 7270843-8 (Version None)
Quarter: 2011Q1

REPORT INFORMATION
  Report Type: 
  Country: None (occurrence: None)
  Receive Date: 20110125
  Receipt Date: 20110125
  Transmission Date: 20110831
  Serious: Yes (Other)
  Sender: FDA-Public Use
  Company Number: None

PATIENT
  Age: 35 Year
  Sex: Female
  Weight: 65.7716 kg

DRUGS (3)
  1. TAXOTERE [Suspect]
  2. TAXOTERE [Suspect]
     Indication: BREAST CANCER
     Dosage: 121MG OVER 1 HR IV
     Route: 042
     Dates: start: 20110110, end: 20110110
  3. TAXOTERE [Suspect]
     Indication: BREAST CANCER
     Dosage: 121MG OVER 1 HR IV
     Route: 042
     Dates: start: 20101213, end: 20101213

REACTIONS (3)
  - ABDOMINAL PAIN [None]
  - HYPERSENSITIVITY [None]
  - ABDOMINAL DISTENSION [None]
